FAERS Safety Report 6073039-0 (Version None)
Quarter: 2009Q1

REPORT INFORMATION
  Report Type: 
  Country: None (occurrence: None)
  Receive Date: 20090211
  Receipt Date: 20090204
  Transmission Date: 20090719
  Serious: Yes (Hospitalization)
  Sender: FDA-Public Use
  Company Number: CH-JNJFOC-20090200762

PATIENT
  Age: 30 Year
  Sex: Female

DRUGS (27)
  1. HALDOL [Suspect]
     Route: 048
  2. HALDOL [Suspect]
     Route: 048
  3. HALDOL [Suspect]
     Indication: SCHIZOPHRENIA
     Route: 048
  4. LEPONEX [Interacting]
     Route: 048
  5. LEPONEX [Interacting]
     Route: 048
  6. LEPONEX [Interacting]
     Route: 048
  7. LEPONEX [Interacting]
     Route: 048
  8. LEPONEX [Interacting]
     Route: 048
  9. LEPONEX [Interacting]
     Route: 048
  10. LEPONEX [Interacting]
     Route: 048
  11. LEPONEX [Interacting]
     Indication: DRUG USE FOR UNKNOWN INDICATION
     Route: 048
  12. TEMESTA [Interacting]
     Route: 048
  13. TEMESTA [Interacting]
     Route: 048
  14. TEMESTA [Interacting]
     Route: 048
  15. TEMESTA [Interacting]
     Route: 048
  16. TEMESTA [Interacting]
     Route: 048
  17. TEMESTA [Interacting]
     Route: 048
  18. TEMESTA [Interacting]
     Indication: DRUG USE FOR UNKNOWN INDICATION
     Route: 048
  19. FERRO SANOL [Concomitant]
     Route: 048
  20. ABILIFY [Concomitant]
     Route: 065
  21. ABILIFY [Concomitant]
     Route: 065
  22. ABILIFY [Concomitant]
     Route: 065
  23. ABILIFY [Concomitant]
     Route: 065
  24. ABILIFY [Concomitant]
     Route: 065
  25. INVEGA [Concomitant]
     Route: 048
  26. INVEGA [Concomitant]
     Route: 048
  27. MAGNESIOCARD [Concomitant]
     Route: 048

REACTIONS (2)
  - DELIRIUM [None]
  - DRUG INTERACTION [None]
